FAERS Safety Report 8093132 (Version 5)
Quarter: 2013Q1

REPORT INFORMATION
  Report Type: Spontaneous
  Country: US (occurrence: US)
  Receive Date: 20110817
  Receipt Date: 20130329
  Transmission Date: 20140127
  Serious: Yes (Hospitalization, Other)
  Sender: FDA-Public Use
  Company Number: US-BIOGENIDEC-2011BI030685

PATIENT
  Sex: Female

DRUGS (1)
  1. TYSABRI [Suspect]
     Indication: MULTIPLE SCLEROSIS
     Route: 042
     Dates: start: 20060913, end: 20130220

REACTIONS (10)
  - Craniocerebral injury [Not Recovered/Not Resolved]
  - Accident [Recovered/Resolved]
  - Facial bones fracture [Recovered/Resolved]
  - Loss of consciousness [Recovered/Resolved]
  - Fall [Recovered/Resolved]
  - Pain [Not Recovered/Not Resolved]
  - Post-traumatic amnestic disorder [Not Recovered/Not Resolved]
  - Aphasia [Recovered/Resolved]
  - Memory impairment [Not Recovered/Not Resolved]
  - Mobility decreased [Not Recovered/Not Resolved]
